FAERS Safety Report 5907920-7 (Version None)
Quarter: 2008Q4

REPORT INFORMATION
  Report Type: 
  Country: None (occurrence: None)
  Receive Date: 20081003
  Receipt Date: 20080922
  Transmission Date: 20090506
  Serious: Yes (Hospitalization)
  Sender: FDA-Public Use
  Company Number: FR-ELI_LILLY_AND_COMPANY-FR200809004600

PATIENT
  Sex: Male

DRUGS (6)
  1. ZYPREXA [Suspect]
     Indication: MAJOR DEPRESSION
     Route: 048
     Dates: start: 20080201
  2. SEROPLEX [Concomitant]
     Indication: MAJOR DEPRESSION
     Dosage: 10 MG, 2/D
     Route: 048
     Dates: start: 20070301
  3. COPEGUS [Concomitant]
     Indication: HEPATITIS C POSITIVE
     Dosage: 1000 MG, DAILY (1/D)
     Route: 048
     Dates: start: 20070902
  4. PEGASYS [Concomitant]
     Indication: HEPATITIS C POSITIVE
     Dosage: 180 UG, WEEKLY (1/W)
     Route: 058
     Dates: start: 20070902
  5. NORVIR [Concomitant]
     Indication: HIV INFECTION
     Dosage: 100 MG, DAILY (1/D)
     Route: 048
     Dates: start: 20070701
  6. REYATAZ [Concomitant]
     Indication: HIV INFECTION
     Dosage: 200 MG, 2/D
     Route: 048
     Dates: start: 20070701

REACTIONS (2)
  - GRAND MAL CONVULSION [None]
  - POSTICTAL STATE [None]
